FAERS Safety Report 8027850-7 (Version None)
Quarter: 2011Q4

REPORT INFORMATION
  Report Type: 
  Country: None (occurrence: None)
  Receive Date: 20111130
  Receipt Date: 20110927
  Transmission Date: 20120403
  Serious: Yes (Other)
  Sender: FDA-Public Use
  Company Number: US201108009511

PATIENT
  Age: 47 Year
  Sex: Female

DRUGS (2)
  1. METFORMIN (METFORMIN) 05/14/2010 TO ONGOING [Concomitant]
  2. BYETTA [Suspect]
     Indication: TYPE 2 DIABETES MELLITUS
     Dosage: 5 UG, BID, SUBCUTANEOUS
     Route: 058
     Dates: start: 20110819, end: 20110819

REACTIONS (1)
  - HYPERSENSITIVITY [None]
